FAERS Safety Report 9745470 (Version 1)
Quarter: 2013Q4

REPORT INFORMATION
  Report Type: Spontaneous
  Country: IT (occurrence: IT)
  Receive Date: 20131211
  Receipt Date: 20131211
  Transmission Date: 20140711
  Serious: Yes (Hospitalization)
  Sender: FDA-Public Use
  Company Number: IT-BAYER-2013-148362

PATIENT
  Age: 81 Year
  Sex: Female
  Weight: 60 kg

DRUGS (3)
  1. GLUCOBAY [Suspect]
     Indication: DIABETES MELLITUS
     Dosage: DAILY DOSE 50 MG
     Route: 048
     Dates: start: 20131019, end: 20131027
  2. PROVISACOR [Concomitant]
     Dosage: DAILY DOSE 20 MG
     Route: 048
  3. ENALAPRIL MALEATE W/ LERCANIDIPIN HCL [Concomitant]
     Dosage: DAILY DOSE 1 DF
     Route: 048

REACTIONS (3)
  - Hyperpyrexia [Recovering/Resolving]
  - Renal failure [Recovering/Resolving]
  - Hypertransaminasaemia [Recovering/Resolving]
